FAERS Safety Report 21133618 (Version 1)
Quarter: 2022Q3

REPORT INFORMATION
  Report Type: Spontaneous
  Country: US (occurrence: None)
  Receive Date: 20220726
  Receipt Date: 20220726
  Transmission Date: 20221027
  Serious: Yes (Hospitalization)
  Sender: FDA-Public Use
  Company Number: None

PATIENT
  Age: 69 Year
  Sex: Male

DRUGS (2)
  1. APIXABAN [Suspect]
     Active Substance: APIXABAN
     Indication: Atrial fibrillation
     Dosage: 5 MG BID PO?
     Route: 048
  2. ASPIRIN [Suspect]
     Active Substance: ASPIRIN
     Indication: Product used for unknown indication
     Dosage: 81 MG EVERY DAY PO?
     Route: 048

REACTIONS (7)
  - Anaemia [None]
  - Haemorrhage [None]
  - Infection [None]
  - Blood urine present [None]
  - Haematochezia [None]
  - Therapy interrupted [None]
  - Therapy cessation [None]

NARRATIVE: CASE EVENT DATE: 20220415
